FAERS Safety Report 19668526 (Version 1)
Quarter: 2021Q3

REPORT INFORMATION
  Report Type: Spontaneous
  Country: CH (occurrence: CH)
  Receive Date: 20210806
  Receipt Date: 20210806
  Transmission Date: 20211014
  Serious: Yes (Hospitalization, Other)
  Sender: FDA-Public Use
  Company Number: CH-PFIZER INC-202100960654

PATIENT
  Age: 57 Year
  Sex: Male
  Weight: 83 kg

DRUGS (7)
  1. PAROXETIN SPIRIG [Concomitant]
     Dosage: 10 MG, DAILY (1/2 TABLET PER DAY)
     Route: 048
  2. METHOTREXATE PFIZER [Suspect]
     Active Substance: METHOTREXATE
     Dosage: 25 MG, WEEKLY
     Route: 058
     Dates: start: 201909, end: 202103
  3. METHOTREXATE PFIZER [Suspect]
     Active Substance: METHOTREXATE
     Dosage: 25 MG, WEEKLY
     Route: 058
     Dates: start: 20190606, end: 201908
  4. ATARAX [Concomitant]
     Active Substance: HYDROXYZINE HYDROCHLORIDE
     Dosage: 25 MG, 1X/DAY
     Route: 048
  5. METHOTREXATE PFIZER [Suspect]
     Active Substance: METHOTREXATE
     Dosage: 20 MG, WEEKLY
     Dates: end: 20130714
  6. TALTZ [Suspect]
     Active Substance: IXEKIZUMAB
     Indication: PSORIATIC ARTHROPATHY
     Dosage: 80 MG, MONTHLY
     Route: 058
     Dates: start: 20170515, end: 202103
  7. ACIDUM FOLICUM STREULI [Concomitant]
     Active Substance: FOLIC ACID
     Dosage: 5 MG, WEEKLY (ON THE DAY AFTER METHOTREXATE)

REACTIONS (1)
  - Chromophobe renal cell carcinoma [Recovered/Resolved]

NARRATIVE: CASE EVENT DATE: 20210510
